FAERS Safety Report 6172696-8 (Version None)
Quarter: 2009Q2

REPORT INFORMATION
  Report Type: 
  Country: None (occurrence: None)
  Receive Date: 20090430
  Receipt Date: 20090424
  Transmission Date: 20091009
  Serious: Yes (Other)
  Sender: FDA-Public Use
  Company Number: ZA-WYE-G03587909

PATIENT
  Sex: Male

DRUGS (4)
  1. EFFEXOR XR [Suspect]
     Dosage: A STABLE SCRIPT
     Route: 048
  2. VALPROATE SODIUM [Suspect]
     Dosage: A STABLE SCRIPT
     Route: 048
  3. ALCOHOL [Suspect]
  4. ZOLPIDEM TARTRATE [Suspect]
     Dosage: A STABLE SCRIPT
     Route: 048

REACTIONS (2)
  - HOMICIDE [None]
  - NONSPECIFIC REACTION [None]
